FAERS Safety Report 7627301-8 (Version None)
Quarter: 2011Q3

REPORT INFORMATION
  Report Type: 
  Country: None (occurrence: None)
  Receive Date: 20110721
  Receipt Date: 20110714
  Transmission Date: 20111222
  Serious: Yes (Death, Other)
  Sender: FDA-Public Use
  Company Number: JP-CELGENEUS-087-50794-11071047

PATIENT
  Age: 93 Year
  Sex: Male

DRUGS (2)
  1. VIDAZA [Suspect]
     Dosage: 120 MILLIGRAM
     Route: 041
     Dates: start: 20110621, end: 20110624
  2. VIDAZA [Suspect]
     Dosage: 120 MILLIGRAM
     Route: 058
     Dates: start: 20110420

REACTIONS (2)
  - MULTI-ORGAN FAILURE [None]
  - SEPSIS [None]
